FAERS Safety Report 7928875-X (Version None)
Quarter: 2011Q4

REPORT INFORMATION
  Report Type: 
  Country: None (occurrence: None)
  Receive Date: 20111118
  Receipt Date: 20111104
  Transmission Date: 20120403
  Serious: Yes (Hospitalization, Other)
  Sender: FDA-Public Use
  Company Number: BR-WATSON-2011-18418

PATIENT
  Age: 18 Year
  Sex: Male

DRUGS (5)
  1. PREDNISONE TAB [Suspect]
     Indication: IMMUNOSUPPRESSION
     Dosage: UNKNOWN
     Route: 065
  2. METHYLPREDNISOLONE [Suspect]
     Indication: RENAL TRANSPLANT
     Dosage: 12 MG, DAILY
  3. METHYLPREDNISOLONE [Suspect]
     Dosage: 16 MG, DAILY
  4. AZATHIOPRINE [Suspect]
     Dosage: 125 MG, DAILY
     Route: 065
  5. AZATHIOPRINE [Suspect]
     Indication: IMMUNOSUPPRESSION
     Dosage: 150 MG, DAILY

REACTIONS (1)
  - CHRONIC MYELOID LEUKAEMIA [None]
